FAERS Safety Report 6100499-9 (Version None)
Quarter: 2009Q1

REPORT INFORMATION
  Report Type: 
  Country: None (occurrence: None)
  Receive Date: 20090226
  Receipt Date: 20090223
  Transmission Date: 20090719
  Serious: Yes (Other)
  Sender: FDA-Public Use
  Company Number: 1000003636

PATIENT
  Age: 56 Year
  Sex: Female
  Weight: 78.4723 kg

DRUGS (16)
  1. MILNACIPRAN (OPEN-LABEL) (MILNACIPRAN HYDROCHLORIDE) [Suspect]
     Indication: FIBROMYALGIA
     Dosage: SEE IMAGE
     Route: 048
     Dates: start: 20061219, end: 20070102
  2. MILNACIPRAN (OPEN-LABEL) (MILNACIPRAN HYDROCHLORIDE) [Suspect]
     Indication: FIBROMYALGIA
     Dosage: SEE IMAGE
     Route: 048
     Dates: start: 20070103, end: 20070314
  3. MILNACIPRAN (OPEN-LABEL) (MILNACIPRAN HYDROCHLORIDE) [Suspect]
     Indication: FIBROMYALGIA
     Dosage: SEE IMAGE
     Route: 048
     Dates: start: 20070315, end: 20070823
  4. MILNACIPRAN (OPEN-LABEL) (MILNACIPRAN HYDROCHLORIDE) [Suspect]
     Indication: FIBROMYALGIA
     Dosage: SEE IMAGE
     Route: 048
     Dates: start: 20070824, end: 20080110
  5. MILNACIPRAN (OPEN-LABEL) (MILNACIPRAN HYDROCHLORIDE) [Suspect]
     Indication: FIBROMYALGIA
     Dosage: SEE IMAGE
     Route: 048
     Dates: start: 20080111
  6. FLONASE [Concomitant]
  7. MIRALAX [Concomitant]
  8. ORPHENADRINE CITRATE [Concomitant]
  9. XANAX [Concomitant]
  10. TRICOR [Concomitant]
  11. MULTIVITAMIN (CAPSULES) [Concomitant]
  12. RESTASIS (DROPS) [Concomitant]
  13. OMEGA 3 (CAPSULES) [Concomitant]
  14. VITAMIN B (TABLETS) [Concomitant]
  15. EXCEDRIN MIGRAINE (TABLETS) [Concomitant]
  16. AMLODIPINE [Concomitant]

REACTIONS (2)
  - BREAST CANCER IN SITU [None]
  - OESTROGEN RECEPTOR ASSAY POSITIVE [None]
